FAERS Safety Report 14614488 (Version 1)
Quarter: 2018Q1

REPORT INFORMATION
  Report Type: Spontaneous
  Country: US (occurrence: US)
  Receive Date: 20180308
  Receipt Date: 20180308
  Transmission Date: 20180509
  Serious: No
  Sender: FDA-Public Use
  Company Number: US-PERRIGO-17US002599

PATIENT
  Sex: Female

DRUGS (3)
  1. NICOTINE POLACRILEX [Suspect]
     Active Substance: NICOTINE
     Indication: PRODUCT USED FOR UNKNOWN INDICATION
     Dosage: UNKNOWN, UNKNOWN
     Route: 002
     Dates: start: 2015
  2. OTHER DRUGS FOR OBSTRUCTIVE AIRWAY DISEASES , [Suspect]
     Active Substance: UNSPECIFIED INGREDIENT
     Indication: CHRONIC OBSTRUCTIVE PULMONARY DISEASE
     Dosage: UNKNOWN, UNKNOWN
     Route: 055
  3. OTHER DRUGS FOR OBSTRUCTIVE AIRWAY DISEASES, [Suspect]
     Active Substance: UNSPECIFIED INGREDIENT
     Indication: EMPHYSEMA

REACTIONS (2)
  - Heart rate increased [Unknown]
  - Blood glucose increased [Unknown]
